FAERS Safety Report 23467601 (Version 1)
Quarter: 2024Q1

REPORT INFORMATION
  Report Type: Spontaneous
  Country: CA (occurrence: CA)
  Receive Date: 20240201
  Receipt Date: 20240201
  Transmission Date: 20240410
  Serious: Yes (Hospitalization, Other)
  Sender: FDA-Public Use
  Company Number: CA-FreseniusKabi-FK202401741

PATIENT
  Age: 69 Year
  Sex: Female

DRUGS (4)
  1. FLUDARABINE [Suspect]
     Active Substance: FLUDARABINE PHOSPHATE
     Indication: Myeloproliferative neoplasm
     Dosage: DOSAGE FORM: NOT SPECIFIED
     Route: 065
  2. CYTARABINE [Suspect]
     Active Substance: CYTARABINE
     Indication: Myeloproliferative neoplasm
     Dosage: FOA: NOT SPECIFIED?ROA: UNKNOWN
  3. FILGRASTIM [Suspect]
     Active Substance: FILGRASTIM
     Indication: Myeloproliferative neoplasm
     Dosage: ROA: UNKNOWN
  4. IDARUBICIN [Suspect]
     Active Substance: IDARUBICIN
     Indication: Myeloproliferative neoplasm
     Dosage: FOA: NOT SPECIFIED?ROA: UNKNOWN

REACTIONS (2)
  - Febrile neutropenia [Unknown]
  - Pneumonia [Unknown]
